FAERS Safety Report 7534027-8 (Version None)
Quarter: 2011Q2

REPORT INFORMATION
  Report Type: 
  Country: None (occurrence: None)
  Receive Date: 20110608
  Receipt Date: 20060830
  Transmission Date: 20111010
  Serious: Yes (Other)
  Sender: FDA-Public Use
  Company Number: PHNR2006AU00624

PATIENT
  Sex: Male

DRUGS (7)
  1. ISOSORBIDE MONONITRATE [Concomitant]
     Dosage: 60 MG,UNK
  2. CIPROFLOXACIN [Concomitant]
     Dosage: 500 MG, BID FOR 7 DAYS
     Dates: start: 20060801
  3. GENTAMYCIN-MP [Concomitant]
     Route: 042
  4. CARDIPRIN [Concomitant]
     Dosage: 100 MG, UNK
  5. TRIMETHOPRIM [Concomitant]
     Indication: URINARY TRACT INFECTION
     Dates: start: 20060309
  6. CLOZARIL [Suspect]
     Dosage: 750MG,DAILY
     Route: 048
  7. NITROGLYCERIN [Concomitant]

REACTIONS (3)
  - RENAL CYST [None]
  - CYSTITIS [None]
  - URINARY TRACT INFECTION [None]
